FAERS Safety Report 5691803-4 (Version None)
Quarter: 2008Q2

REPORT INFORMATION
  Report Type: 
  Country: None (occurrence: None)
  Receive Date: 20080402
  Receipt Date: 20080320
  Transmission Date: 20081010
  Serious: Yes (Other)
  Sender: FDA-Public Use
  Company Number: GB-AMGEN-US270986

PATIENT
  Age: 6 Year
  Sex: Female
  Weight: 21.2 kg

DRUGS (4)
  1. ENBREL [Suspect]
     Indication: ARTHRITIS
     Route: 058
     Dates: start: 20070101
  2. METHOTREXATE [Concomitant]
     Indication: ARTHRITIS
     Dosage: 20 MG FREQUENCY UNKNOWN
     Route: 058
     Dates: start: 20050901
  3. PREDNISOLONE [Concomitant]
     Indication: ARTHRITIS
     Dosage: UNKNOWN
     Route: 048
     Dates: start: 20080101
  4. DICLOFENAC SODIUM [Concomitant]
     Indication: ARTHRITIS
     Route: 048
     Dates: start: 20050901

REACTIONS (2)
  - CONDITION AGGRAVATED [None]
  - MIGRAINE [None]
